FAERS Safety Report 4706729-X (Version None)
Quarter: 2005Q2

REPORT INFORMATION
  Report Type: 
  Country: None (occurrence: None)
  Receive Date: 20050629
  Receipt Date: 20050509
  Transmission Date: 20051028
  Serious: No
  Sender: FDA-Public Use
  Company Number: 04P-163-0269093-00

PATIENT
  Age: 75 Year
  Sex: Female
  Weight: 80.7403 kg

DRUGS (12)
  1. HUMIRA [Suspect]
     Indication: RHEUMATOID ARTHRITIS
     Dosage: 40 MG, 1 IN 2 WK, SUBCUTANEOUS
     Route: 058
     Dates: start: 20030601
  2. ACETAMINOPHEN [Concomitant]
  3. METOPROLOL TARTRATE [Concomitant]
  4. PENTOSAN POLYSULFATE SODIUM [Concomitant]
  5. AMITRIPTYLINE HCL [Concomitant]
  6. CEVIMELINE HYDROCHLORIDE [Concomitant]
  7. MECLIZINE [Concomitant]
  8. METRONIDAZOLE [Concomitant]
  9. ASPIRIN [Concomitant]
  10. MULTI-VITAMINS [Concomitant]
  11. CALCIUM GLUCONATE [Concomitant]
  12. TERBINAFINE HCL [Concomitant]

REACTIONS (3)
  - INJECTION SITE IRRITATION [None]
  - PROCEDURAL COMPLICATION [None]
  - URINARY TRACT INFECTION [None]
